FAERS Safety Report 10086846 (Version 1)
Quarter: 2014Q2

REPORT INFORMATION
  Report Type: Spontaneous
  Country: JP (occurrence: JP)
  Receive Date: 20140418
  Receipt Date: 20140418
  Transmission Date: 20141212
  Serious: Yes (Death)
  Sender: FDA-Public Use
  Company Number: JP-BAXTER-2014BAX018402

PATIENT
  Sex: 0

DRUGS (4)
  1. DIANEAL-N PD-2 2.5 PD SOLUTION [Suspect]
     Indication: RENAL FAILURE CHRONIC
     Route: 033
     Dates: end: 20140410
  2. DIANEAL-N PD-2 2.5 PD SOLUTION [Suspect]
     Indication: PERITONEAL LAVAGE
  3. EXTRANEAL [Suspect]
     Indication: RENAL FAILURE CHRONIC
     Route: 033
     Dates: end: 20140410
  4. EXTRANEAL [Suspect]
     Indication: PERITONEAL LAVAGE

REACTIONS (1)
  - Marasmus [Fatal]
